FAERS Safety Report 13780065 (Version 1)
Quarter: 2017Q3

REPORT INFORMATION
  Report Type: Spontaneous
  Country: US (occurrence: US)
  Receive Date: 20170724
  Receipt Date: 20170724
  Transmission Date: 20171127
  Serious: No
  Sender: FDA-Public Use
  Company Number: US-MACLEODS PHARMACEUTICALS US LTD-MAC2017005271

PATIENT

DRUGS (1)
  1. VALSARTAN AND HYDROCHLOROTHIAZIDE [Suspect]
     Active Substance: HYDROCHLOROTHIAZIDE\VALSARTAN
     Indication: HYPERTENSION
     Dosage: 320 MG/12.5 MG, QD
     Route: 048

REACTIONS (8)
  - Palpitations [None]
  - Drug ineffective [Not Recovered/Not Resolved]
  - Abdominal pain upper [None]
  - Tremor [None]
  - Paraesthesia oral [None]
  - Asthenia [None]
  - Hot flush [None]
  - Nausea [None]
